FAERS Safety Report 6269578-X (Version None)
Quarter: 2009Q3

REPORT INFORMATION
  Report Type: 
  Country: None (occurrence: None)
  Receive Date: 20090715
  Receipt Date: 20090710
  Transmission Date: 20100115
  Serious: Yes (Other)
  Sender: FDA-Public Use
  Company Number: US-GENENTECH-286298

PATIENT
  Sex: Male

DRUGS (2)
  1. BEVACIZUMAB [Suspect]
     Indication: CORNEAL NEOVASCULARISATION
     Dosage: 25 MG/ML, QID X 2 MONTHS
     Route: 061
  2. BEVACIZUMAB [Suspect]
     Indication: ULCERATIVE KERATITIS

REACTIONS (1)
  - ULCERATIVE KERATITIS [None]
